FAERS Safety Report 12179120 (Version 1)
Quarter: 2016Q1

REPORT INFORMATION
  Report Type: Spontaneous
  Country: US (occurrence: None)
  Receive Date: 20160314
  Receipt Date: 20160314
  Transmission Date: 20160526
  Serious: Yes (Other)
  Sender: FDA-Public Use
  Company Number: None

PATIENT
  Age: 40 Year
  Sex: Male
  Weight: 88.91 kg

DRUGS (3)
  1. BUPROPION X1150 [Concomitant]
  2. ADVOCARE MSN3 [Concomitant]
  3. XARELTO [Suspect]
     Active Substance: RIVAROXABAN
     Indication: DEEP VEIN THROMBOSIS
     Dosage: Q ONCE DAILY?
     Route: 003

REACTIONS (1)
  - Vision blurred [None]
